FAERS Safety Report 10163943 (Version 1)
Quarter: 2014Q2

REPORT INFORMATION
  Report Type: Spontaneous
  Country: US (occurrence: US)
  Receive Date: 20140510
  Receipt Date: 20140510
  Transmission Date: 20141212
  Serious: No
  Sender: FDA-Public Use
  Company Number: US-BRISTOL-MYERS SQUIBB COMPANY-19681196

PATIENT
  Age: 74 Year
  Sex: Male
  Weight: 115.64 kg

DRUGS (1)
  1. BYETTA [Suspect]

REACTIONS (1)
  - Weight decreased [Unknown]
